FAERS Safety Report 8238542-3 (Version None)
Quarter: 2012Q1

REPORT INFORMATION
  Report Type: 
  Country: None (occurrence: None)
  Receive Date: 20120327
  Receipt Date: 20120321
  Transmission Date: 20120608
  Serious: Yes (Death, Other)
  Sender: FDA-Public Use
  Company Number: TR-CELGENEUS-161-50794-12032339

PATIENT
  Sex: Male
  Weight: 70 kg

DRUGS (4)
  1. VENTOLIN [Concomitant]
     Route: 055
     Dates: start: 20120102, end: 20120313
  2. VIDAZA [Suspect]
     Dosage: 140 MILLIGRAM
     Route: 065
     Dates: start: 20120307, end: 20120308
  3. DUOCID [Concomitant]
     Indication: CELLULITIS
     Dosage: 6 GRAM
     Route: 041
     Dates: start: 20120303, end: 20120308
  4. CIPROFLOXACIN [Concomitant]
     Indication: CELLULITIS
     Dosage: 400 MILLIGRAM
     Route: 041
     Dates: start: 20120303, end: 20120313

REACTIONS (3)
  - SEPSIS [None]
  - CARDIOPULMONARY FAILURE [None]
  - GASTRIC PERFORATION [None]
